FAERS Safety Report 6363454-X (Version None)
Quarter: 2009Q3

REPORT INFORMATION
  Report Type: 
  Country: None (occurrence: None)
  Receive Date: 20090919
  Receipt Date: 20090630
  Transmission Date: 20100115
  Serious: No
  Sender: FDA-Public Use
  Company Number: US-ABBOTT-09P-163-0582772-00

PATIENT
  Sex: Female

DRUGS (3)
  1. HUMIRA [Suspect]
     Indication: CROHN'S DISEASE
     Dates: start: 20090129
  2. HUMIRA [Suspect]
  3. REMICADE [Concomitant]
     Indication: DRUG USE FOR UNKNOWN INDICATION
     Dosage: NOT REPORTED

REACTIONS (15)
  - BLOOD ELECTROLYTES DECREASED [None]
  - BLOOD POTASSIUM DECREASED [None]
  - CHEST DISCOMFORT [None]
  - DEPRESSION [None]
  - EXTRASYSTOLES [None]
  - GINGIVAL BLEEDING [None]
  - HEPATIC ENZYME DECREASED [None]
  - INCREASED TENDENCY TO BRUISE [None]
  - INJECTION SITE ERYTHEMA [None]
  - INJECTION SITE REACTION [None]
  - MENORRHAGIA [None]
  - MIDDLE INSOMNIA [None]
  - PALPITATIONS [None]
  - PANIC ATTACK [None]
  - VENTRICULAR EXTRASYSTOLES [None]
